FAERS Safety Report 7574310-3 (Version None)
Quarter: 2011Q2

REPORT INFORMATION
  Report Type: 
  Country: None (occurrence: None)
  Receive Date: 20110627
  Receipt Date: 20110531
  Transmission Date: 20111010
  Serious: Yes (Hospitalization, Other)
  Sender: FDA-Public Use
  Company Number: US-BAYER-201040029NA

PATIENT
  Age: 24 Year
  Sex: Female
  Weight: 77.1 kg

DRUGS (3)
  1. YAZ [Suspect]
     Indication: PROPHYLAXIS
     Dosage: UNK
     Route: 048
     Dates: start: 19980101, end: 20080101
  2. YAZ [Suspect]
     Indication: CONTRACEPTION
  3. YAZ [Suspect]
     Indication: PREMENSTRUAL SYNDROME

REACTIONS (8)
  - CEREBROVASCULAR ACCIDENT [None]
  - PULMONARY EMBOLISM [None]
  - HEMIPARESIS [None]
  - SPEECH DISORDER [None]
  - MUSCULOSKELETAL PAIN [None]
  - QUALITY OF LIFE DECREASED [None]
  - AFFECT LABILITY [None]
  - DYSGRAPHIA [None]
